FAERS Safety Report 7634575-6 (Version None)
Quarter: 2011Q3

REPORT INFORMATION
  Report Type: 
  Country: None (occurrence: None)
  Receive Date: 20110725
  Receipt Date: 20110715
  Transmission Date: 20111222
  Serious: Yes (Congenital Anomaly)
  Sender: FDA-Public Use
  Company Number: US-ABBOTT-11P-163-0839750-00

PATIENT
  Sex: Male

DRUGS (3)
  1. LORTAB [Suspect]
     Indication: MATERNAL EXPOSURE DURING PREGNANCY
     Route: 064
  2. ZOLOFT [Suspect]
     Indication: MATERNAL EXPOSURE DURING PREGNANCY
     Route: 064
  3. VICODIN [Suspect]
     Indication: MATERNAL EXPOSURE DURING PREGNANCY
     Route: 064

REACTIONS (3)
  - HYPOPLASTIC LEFT HEART SYNDROME [None]
  - INJURY [None]
  - MATERNAL EXPOSURE DURING PREGNANCY [None]
